FAERS Safety Report 5312188-9 (Version None)
Quarter: 2007Q2

REPORT INFORMATION
  Report Type: 
  Country: None (occurrence: None)
  Receive Date: 20070430
  Receipt Date: 20060925
  Transmission Date: 20071010
  Serious: No
  Sender: FDA-Public Use
  Company Number: 2006UW18617

PATIENT
  Sex: Female

DRUGS (1)
  1. NEXIUM [Suspect]
     Indication: GASTROOESOPHAGEAL REFLUX DISEASE
     Route: 048
     Dates: start: 20060901

REACTIONS (6)
  - ABDOMINAL DISTENSION [None]
  - APPETITE DISORDER [None]
  - CONSTIPATION [None]
  - DIARRHOEA [None]
  - DYSURIA [None]
  - MUSCLE SPASMS [None]
